FAERS Safety Report 12643704 (Version 2)
Quarter: 2016Q4

REPORT INFORMATION
  Report Type: Spontaneous
  Country: US (occurrence: US)
  Receive Date: 20160811
  Receipt Date: 20161006
  Transmission Date: 20170207
  Serious: No
  Sender: FDA-Public Use
  Company Number: US-BEH-2016072237

PATIENT
  Sex: Female
  Weight: 136.96 kg

DRUGS (33)
  1. DIPHENHYDRAMINE. [Concomitant]
     Active Substance: DIPHENHYDRAMINE
  2. CELEBREX [Concomitant]
     Active Substance: CELECOXIB
  3. GLIMEPIRIDE. [Concomitant]
     Active Substance: GLIMEPIRIDE
  4. NEXIUM [Concomitant]
     Active Substance: ESOMEPRAZOLE MAGNESIUM
  5. OXYGEN. [Concomitant]
     Active Substance: OXYGEN
  6. LOSARTAN. [Concomitant]
     Active Substance: LOSARTAN
  7. ALBUTEROL                          /00139501/ [Concomitant]
     Active Substance: ALBUTEROL
  8. SOMA [Concomitant]
     Active Substance: CARISOPRODOL
  9. SPIRIVA [Concomitant]
     Active Substance: TIOTROPIUM BROMIDE MONOHYDRATE
  10. PROAIR HFA [Concomitant]
     Active Substance: ALBUTEROL SULFATE
  11. PROVIGIL [Concomitant]
     Active Substance: MODAFINIL
  12. SYNTHROID [Concomitant]
     Active Substance: LEVOTHYROXINE SODIUM
  13. LANTUS [Concomitant]
     Active Substance: INSULIN GLARGINE
  14. SODIUM CHLORIDE. [Concomitant]
     Active Substance: SODIUM CHLORIDE
  15. AVELOX [Concomitant]
     Active Substance: MOXIFLOXACIN HYDROCHLORIDE
  16. SINGULAIR [Concomitant]
     Active Substance: MONTELUKAST SODIUM
  17. LYRICA [Concomitant]
     Active Substance: PREGABALIN
  18. VICODIN [Concomitant]
     Active Substance: ACETAMINOPHEN\HYDROCODONE BITARTRATE
  19. HYDROCHLOROTHIAZIDE. [Concomitant]
     Active Substance: HYDROCHLOROTHIAZIDE
  20. ADVAIR HFA [Concomitant]
     Active Substance: FLUTICASONE PROPIONATE\SALMETEROL XINAFOATE
  21. POTASSIUM [Concomitant]
     Active Substance: POTASSIUM
  22. FERROUS SULFATE. [Concomitant]
     Active Substance: FERROUS SULFATE
  23. KEFLEX [Concomitant]
     Active Substance: CEPHALEXIN
  24. LMX                                /00033401/ [Concomitant]
  25. FENTANYL. [Concomitant]
     Active Substance: FENTANYL
  26. MECLIZINE [Concomitant]
     Active Substance: MECLIZINE HYDROCHLORIDE
  27. SIMVASTATIN. [Concomitant]
     Active Substance: SIMVASTATIN
  28. ZEMAIRA [Suspect]
     Active Substance: .ALPHA.1-PROTEINASE INHIBITOR HUMAN
     Indication: EMPHYSEMA
     Dosage: 90 MG, QW
     Route: 042
     Dates: start: 20130409
  29. ZEMAIRA [Suspect]
     Active Substance: .ALPHA.1-PROTEINASE INHIBITOR HUMAN
     Indication: ALPHA-1 ANTI-TRYPSIN DEFICIENCY
  30. ROBAXIN [Concomitant]
     Active Substance: METHOCARBAMOL
  31. EPIPEN [Concomitant]
     Active Substance: EPINEPHRINE
  32. SYNTHROID [Concomitant]
     Active Substance: LEVOTHYROXINE SODIUM
  33. ZOLOFT [Concomitant]
     Active Substance: SERTRALINE HYDROCHLORIDE

REACTIONS (1)
  - Nasopharyngitis [Unknown]
